FAERS Safety Report 12778699 (Version 1)
Quarter: 2016Q3

REPORT INFORMATION
  Report Type: Spontaneous
  Country: KR (occurrence: KR)
  Receive Date: 20160926
  Receipt Date: 20160926
  Transmission Date: 20161109
  Serious: Yes (Other)
  Sender: FDA-Public Use
  Company Number: KR-009507513-1609KOR010328

PATIENT
  Age: 29 Year
  Sex: Male

DRUGS (1)
  1. PROPECIA [Suspect]
     Active Substance: FINASTERIDE
     Indication: ALOPECIA
     Dosage: 1 MG, UNK
     Route: 048
     Dates: start: 20160912, end: 20160913

REACTIONS (8)
  - Polydipsia [Unknown]
  - Genital paraesthesia [Unknown]
  - Feeling abnormal [Unknown]
  - Vision blurred [Unknown]
  - Speech disorder [Unknown]
  - Depression suicidal [Unknown]
  - Insomnia [Unknown]
  - Memory impairment [Unknown]

NARRATIVE: CASE EVENT DATE: 20160912
